FAERS Safety Report 4737392-X (Version None)
Quarter: 2005Q3

REPORT INFORMATION
  Report Type: 
  Country: None (occurrence: None)
  Receive Date: 20050805
  Receipt Date: 20050729
  Transmission Date: 20060218
  Serious: Yes (Other)
  Sender: FDA-Public Use
  Company Number: 2005090796

PATIENT
  Age: 57 Year
  Sex: Female
  Weight: 90.7194 kg

DRUGS (4)
  1. LIPITOR [Suspect]
     Indication: BLOOD CHOLESTEROL
     Dosage: 40 MG (40 MG, 1 IN 1 D), ORAL
     Route: 048
  2. TOPROL (METOPROLOL) [Concomitant]
  3. LOTREL [Concomitant]
  4. MULTIVITAMIN [Concomitant]

REACTIONS (6)
  - DEAFNESS UNILATERAL [None]
  - EUSTACHIAN TUBE DYSFUNCTION [None]
  - HYPOACUSIS [None]
  - NASAL CONGESTION [None]
  - OTITIS MEDIA [None]
  - TYMPANIC MEMBRANE DISORDER [None]
